FAERS Safety Report 4638047-2 (Version None)
Quarter: 2005Q2

REPORT INFORMATION
  Report Type: 
  Country: None (occurrence: None)
  Receive Date: 20050415
  Receipt Date: 20050406
  Transmission Date: 20051028
  Serious: Yes (Other)
  Sender: FDA-Public Use
  Company Number: 2004220429US

PATIENT
  Age: 54 Year
  Sex: Female
  Weight: 88.905 kg

DRUGS (8)
  1. PROVERA [Suspect]
     Indication: HORMONE REPLACEMENT THERAPY
     Dosage: 10 MG (5 MG)
     Dates: start: 19960529, end: 19970707
  2. CONJUGATED ESTROGENS [Suspect]
     Indication: HORMONE REPLACEMENT THERAPY
     Dosage: 0.625 MG (0.625 MG)
     Dates: start: 19960529, end: 19970707
  3. PROVELLA-14 (ESTROGENS CONJUGATED, MEDROXYPROGESTERONE ACETATE) [Suspect]
     Indication: HORMONE REPLACEMENT THERAPY
     Dosage: 2.5 MG (0.625 MG)
     Dates: start: 19970707, end: 19990801
  4. INDAPAMIDE [Concomitant]
  5. LEVOTHYROXINE SODIUM [Concomitant]
  6. QUINAPRIL HCL [Concomitant]
  7. ALENDRONATE SODIUM [Concomitant]
  8. FLUOXETINE HCL [Concomitant]

REACTIONS (1)
  - BREAST CANCER IN SITU [None]
